FAERS Safety Report 19551749 (Version 3)
Quarter: 2021Q4

REPORT INFORMATION
  Report Type: Spontaneous
  Country: US (occurrence: US)
  Receive Date: 20210714
  Receipt Date: 20211125
  Transmission Date: 20220303
  Serious: No
  Sender: FDA-Public Use
  Company Number: US-BOEHRINGERINGELHEIM-2021-BI-115228

PATIENT
  Age: 53 Year
  Sex: Female

DRUGS (3)
  1. LINAGLIPTIN [Suspect]
     Active Substance: LINAGLIPTIN
     Dosage: 5MG ONCE DAILY
     Route: 065
     Dates: start: 2019
  2. LINAGLIPTIN [Suspect]
     Active Substance: LINAGLIPTIN
     Indication: Product used for unknown indication
  3. JARDIANCE [Suspect]
     Active Substance: EMPAGLIFLOZIN
     Indication: Product used for unknown indication
     Dosage: 10MG ONCE DAILY
     Route: 065
     Dates: start: 2019

REACTIONS (5)
  - Illness [Unknown]
  - Glycosylated haemoglobin increased [Unknown]
  - Vocal cord disorder [Recovered/Resolved]
  - Cough [Recovered/Resolved]
  - Malaise [Unknown]

NARRATIVE: CASE EVENT DATE: 20210101
